FAERS Safety Report 16404516 (Version 3)
Quarter: 2025Q4

REPORT INFORMATION
  Report Type: Spontaneous
  Country: EU (occurrence: EU)
  Receive Date: 20190607
  Receipt Date: 20251030
  Transmission Date: 20260118
  Serious: Yes (Hospitalization)
  Sender: AUROBINDO
  Company Number: EU-AUROBINDO-AUR-APL-2019-031998

PATIENT
  Age: 49 Year
  Sex: Male

DRUGS (8)
  1. VORICONAZOLE [Suspect]
     Active Substance: VORICONAZOLE
     Indication: Bronchopulmonary aspergillosis
     Dosage: 400 MILLIGRAM, TWO TIMES A DAY
     Route: 065
  2. VORICONAZOLE [Suspect]
     Active Substance: VORICONAZOLE
     Indication: Aspergillus infection
     Dosage: 600 MILLIGRAM, TWO TIMES A DAY
     Route: 065
  3. VORICONAZOLE [Suspect]
     Active Substance: VORICONAZOLE
     Indication: Influenza
  4. GABAPENTIN [Concomitant]
     Active Substance: GABAPENTIN
     Indication: Pain in extremity
     Dosage: 600 MILLIGRAM, FOUR TIMES/DAY
     Route: 065
  5. TRAMADOL [Concomitant]
     Active Substance: TRAMADOL
     Indication: Pain in extremity
     Dosage: 100 MILLIGRAM, ONCE A DAY
     Route: 065
  6. ISAVUCONAZOLE [Concomitant]
     Active Substance: ISAVUCONAZOLE
     Indication: Bronchopulmonary aspergillosis
     Dosage: UNK
     Route: 065
  7. ISAVUCONAZOLE [Concomitant]
     Active Substance: ISAVUCONAZOLE
     Indication: Aspergillus infection
  8. ISAVUCONAZOLE [Concomitant]
     Active Substance: ISAVUCONAZOLE
     Indication: Influenza

REACTIONS (3)
  - Periostitis [Recovered/Resolved]
  - Bone pain [Recovered/Resolved]
  - Drug level above therapeutic [Recovered/Resolved]
